FAERS Safety Report 6541888-8 (Version None)
Quarter: 2010Q1

REPORT INFORMATION
  Report Type: 
  Country: None (occurrence: None)
  Receive Date: 20100119
  Receipt Date: 20100113
  Transmission Date: 20100710
  Serious: Yes (Other)
  Sender: FDA-Public Use
  Company Number: US-RB-000651-10

PATIENT
  Age: 26 Year
  Sex: Female

DRUGS (2)
  1. SUBOXONE [Suspect]
     Indication: DRUG DEPENDENCE
     Route: 060
     Dates: start: 20081101
  2. XANAX [Suspect]
     Indication: ANXIETY
     Route: 048
     Dates: start: 20070101, end: 20100101

REACTIONS (1)
  - CONVULSION [None]
